FAERS Safety Report 4629121-5 (Version None)
Quarter: 2005Q2

REPORT INFORMATION
  Report Type: 
  Country: None (occurrence: None)
  Receive Date: 20050407
  Receipt Date: 20050328
  Transmission Date: 20051028
  Serious: Yes (Hospitalization)
  Sender: FDA-Public Use
  Company Number: US-BRISTOL-MYERS SQUIBB COMPANY-12913315

PATIENT
  Age: 69 Year
  Sex: Female

DRUGS (1)
  1. CISPLATIN [Suspect]
     Indication: GASTRIC CANCER
     Route: 042
     Dates: start: 20040113

REACTIONS (2)
  - BLOOD CREATININE INCREASED [None]
  - DEHYDRATION [None]
